FAERS Safety Report 9580259 (Version 1)
Quarter: 2013Q4

REPORT INFORMATION
  Report Type: Spontaneous
  Country: JP (occurrence: JP)
  Receive Date: 20131002
  Receipt Date: 20131002
  Transmission Date: 20140711
  Serious: Yes (Life-Threatening, Hospitalization)
  Sender: FDA-Public Use
  Company Number: JP-BAYER-2013-117672

PATIENT
  Age: 65 Year
  Sex: Female

DRUGS (1)
  1. STIVARGA [Suspect]
     Indication: COLORECTAL CANCER
     Dosage: 160 MG, QD
     Route: 048
     Dates: start: 20130914, end: 20130920

REACTIONS (4)
  - Liver function test abnormal [Recovering/Resolving]
  - Pyrexia [Not Recovered/Not Resolved]
  - Drug eruption [Not Recovered/Not Resolved]
  - Platelet count decreased [Not Recovered/Not Resolved]
